FAERS Safety Report 7551205-2 (Version None)
Quarter: 2011Q2

REPORT INFORMATION
  Report Type: 
  Country: None (occurrence: None)
  Receive Date: 20110616
  Receipt Date: 20110603
  Transmission Date: 20111010
  Serious: Yes (Other)
  Sender: FDA-Public Use
  Company Number: PHHY2011JP45315

PATIENT
  Age: 12 Year
  Sex: Male

DRUGS (2)
  1. CARBAMAZEPINE [Suspect]
     Indication: CONVULSION
     Dosage: UNK
     Route: 048
  2. ATOMOXETINE HCL [Suspect]
     Dosage: UNK
     Route: 048

REACTIONS (8)
  - DISTURBANCE IN ATTENTION [None]
  - HYPERKINESIA [None]
  - IMPULSIVE BEHAVIOUR [None]
  - LEARNING DISORDER [None]
  - SELF ESTEEM DECREASED [None]
  - SUICIDAL IDEATION [None]
  - DEPRESSIVE SYMPTOM [None]
  - ATTENTION DEFICIT/HYPERACTIVITY DISORDER [None]
